FAERS Safety Report 5896595-1 (Version None)
Quarter: 2008Q3

REPORT INFORMATION
  Report Type: 
  Country: None (occurrence: None)
  Receive Date: 20080924
  Receipt Date: 20071025
  Transmission Date: 20090109
  Serious: Yes (Hospitalization, Other)
  Sender: FDA-Public Use
  Company Number: US-BAYER-200712941BWH

PATIENT
  Age: 33 Year
  Sex: Male
  Weight: 75 kg

DRUGS (2)
  1. AVELOX [Suspect]
     Indication: DIVERTICULITIS
     Route: 048
     Dates: start: 20070828
  2. ZYRTEC [Concomitant]
     Indication: RHINITIS ALLERGIC
     Route: 048

REACTIONS (3)
  - ANAPHYLACTIC REACTION [None]
  - OROPHARYNGEAL DISCOMFORT [None]
  - PRURITUS [None]
